FAERS Safety Report 21058531 (Version 1)
Quarter: 2022Q3

REPORT INFORMATION
  Report Type: Spontaneous
  Country: US (occurrence: US)
  Receive Date: 20220708
  Receipt Date: 20220708
  Transmission Date: 20221026
  Serious: Yes (Hospitalization, Other)
  Sender: FDA-Public Use
  Company Number: US-GLAXOSMITHKLINE-US2022AMR101036

PATIENT

DRUGS (9)
  1. FLOVENT HFA [Suspect]
     Active Substance: FLUTICASONE PROPIONATE
     Indication: Asthma
     Dosage: 2 PUFF(S), BID
     Route: 055
  2. ALBUTEROL SULFATE [Suspect]
     Active Substance: ALBUTEROL SULFATE
     Indication: Asthma
     Dosage: 2 PUFF(S),EVERY 4 HOURS
     Route: 055
  3. LIPITOR [Suspect]
     Active Substance: ATORVASTATIN CALCIUM
     Indication: Hyperlipidaemia
     Dosage: 1 DF, QD
     Route: 048
  4. DEVICE [Suspect]
     Active Substance: DEVICE
     Indication: Obstructive sleep apnoea syndrome
     Dosage: 1 DF, QD(NIGHTLY)
  5. NEURONTIN [Suspect]
     Active Substance: GABAPENTIN
     Indication: Neuralgia
     Dosage: 1 DF,AS NEEDED
     Route: 048
  6. XALATAN [Suspect]
     Active Substance: LATANOPROST
     Indication: Open angle glaucoma
     Dosage: UNK, QD,1 DROP IN BOTH EYE NIGHTLY
     Route: 031
  7. HYZAAR [Suspect]
     Active Substance: HYDROCHLOROTHIAZIDE\LOSARTAN POTASSIUM
     Indication: Hypertension
     Dosage: 1 DF, QD
     Route: 048
  8. NYSTOP [Suspect]
     Active Substance: NYSTATIN
     Indication: Fungal infection
     Dosage: UNK, QID
  9. TOPAMAX [Suspect]
     Active Substance: TOPIRAMATE
     Indication: Migraine
     Dosage: 1 DF, QD
     Route: 048

REACTIONS (16)
  - Coronavirus infection [Unknown]
  - Leukopenia [Unknown]
  - Lymphopenia [Unknown]
  - Iron deficiency anaemia [Unknown]
  - Haemoglobin decreased [Unknown]
  - White blood cell count decreased [Unknown]
  - Light chain analysis abnormal [Unknown]
  - Lymphocyte count decreased [Unknown]
  - Blood creatinine increased [Unknown]
  - Blood pressure systolic increased [Unknown]
  - Blood urea increased [Unknown]
  - Glomerular filtration rate decreased [Unknown]
  - Red blood cell count decreased [Unknown]
  - Haematocrit decreased [Unknown]
  - Blood potassium increased [Unknown]
  - Neutrophil count decreased [Unknown]

NARRATIVE: CASE EVENT DATE: 20120101
